FAERS Safety Report 18321066 (Version 1)
Quarter: 2020Q3

REPORT INFORMATION
  Report Type: Spontaneous
  Country: DE (occurrence: DE)
  Receive Date: 20200929
  Receipt Date: 20200929
  Transmission Date: 20201103
  Serious: Yes (Life-Threatening, Hospitalization, Other)
  Sender: FDA-Public Use
  Company Number: DE-TEVA-2020-DE-1831528

PATIENT
  Age: 80 Year
  Sex: Male

DRUGS (19)
  1. ENTRESTO [Suspect]
     Active Substance: SACUBITRIL\VALSARTAN
     Dosage: 1 DOSAGE FORMS DAILY; ENTRESTO 24|26 MG, 1?0?0?0
  2. APIXABAN [Concomitant]
     Active Substance: APIXABAN
     Dosage: 10 MILLIGRAM DAILY; UNIT DOSE : 5 MG, 1?0?1?0
  3. XTANDI [Suspect]
     Active Substance: ENZALUTAMIDE
     Dosage: 160 MILLIGRAM DAILY; UNIT DOSE : 40 MG, 1?1?1?1
  4. FENTANYL. [Suspect]
     Active Substance: FENTANYL
     Dosage: UNIT DOSE : 100 MICROG, 3X
     Route: 060
  5. SALBUTAMOL [Concomitant]
     Active Substance: ALBUTEROL
     Dosage: UNIT DOSE : 0.1 MG, IF NECESSARY
  6. ZOPICLON [Concomitant]
     Active Substance: ZOPICLONE
     Dosage: 7.5 MILLIGRAM DAILY; 0?0?0?1
  7. METAMIZOL [Concomitant]
     Active Substance: METAMIZOLE SODIUM
     Dosage: 8 DOSAGE FORMS DAILY; 500 MG, 2?2?2?2, UNIT DOSE : 2 DOSAGE FORMS
  8. ATORVASTATIN [Concomitant]
     Active Substance: ATORVASTATIN
     Dosage: 20 MILLIGRAM DAILY; 0?0?1?0
  9. METOPROLOL. [Suspect]
     Active Substance: METOPROLOL
     Dosage: 47.5 MG, 1.5?0?2?0
  10. FUROSEMID [Suspect]
     Active Substance: FUROSEMIDE
     Dosage: .5 DOSAGE FORMS DAILY; 40 MG, 0.5?0?0?0
  11. METFORMIN [Concomitant]
     Active Substance: METFORMIN HYDROCHLORIDE
     Dosage: 500 MG, 1?0?2?0
  12. NITROLINGUAL [Concomitant]
     Active Substance: NITROGLYCERIN
     Dosage: NK MG, IF NECESSARY
  13. EPLERENON [Suspect]
     Active Substance: EPLERENONE
     Dosage: 25 MILLIGRAM DAILY; 1?0?0?0
  14. OMEPRAZOL [Concomitant]
     Active Substance: OMEPRAZOLE
     Dosage: 40 MILLIGRAM DAILY; UNIT DOSE : 20 MG, 1?0?1?0
  15. LEVOTHYROXINE SODIUM. [Concomitant]
     Active Substance: LEVOTHYROXINE SODIUM
     Dosage: 88 MICROGRAM DAILY; 1?0?0?0
  16. LEUPRORELIN [Suspect]
     Active Substance: LEUPROLIDE ACETATE
     Dosage: NK MG / 3 ASSEMBLY, 1X
  17. ENTRESTO [Suspect]
     Active Substance: SACUBITRIL\VALSARTAN
     Dosage: 1 DOSAGE FORMS DAILY; ENTRESTO 49MG/51MG , 0?0?1?0
  18. ALLOPURINOL. [Concomitant]
     Active Substance: ALLOPURINOL
     Dosage: .5 DOSAGE FORMS DAILY; 300 MG, 0.5?0?0?0
  19. RESTEX 100MG/25MG [Concomitant]
     Dosage: 100|25 MG, 0?0?0.5?1

REACTIONS (10)
  - Acute kidney injury [Unknown]
  - Adrenocortical insufficiency acute [Unknown]
  - General physical health deterioration [Recovering/Resolving]
  - Fatigue [Recovering/Resolving]
  - Hypotension [Recovering/Resolving]
  - Condition aggravated [Recovering/Resolving]
  - Nausea [Recovering/Resolving]
  - Disorientation [Recovering/Resolving]
  - Depressed level of consciousness [Recovering/Resolving]
  - Electrocardiogram QT prolonged [Unknown]

NARRATIVE: CASE EVENT DATE: 20200721
